FAERS Safety Report 10306449 (Version 2)
Quarter: 2014Q4

REPORT INFORMATION
  Report Type: Spontaneous
  Country: US (occurrence: US)
  Receive Date: 20140715
  Receipt Date: 20141208
  Transmission Date: 20150528
  Serious: No
  Sender: FDA-Public Use
  Company Number: US-009507513-1407USA006753

PATIENT
  Sex: Female
  Weight: 58.96 kg

DRUGS (7)
  1. CLARITIN-D 24 HOUR [Suspect]
     Active Substance: LORATADINE\PSEUDOEPHEDRINE SULFATE
     Indication: PRODUCT USED FOR UNKNOWN INDICATION
     Dosage: UNK, UNKNOWN
     Route: 048
  2. DEPAKOTE [Concomitant]
     Active Substance: DIVALPROEX SODIUM
     Indication: PRODUCT USED FOR UNKNOWN INDICATION
     Dosage: UNK, UNKNOWN
  3. XANAX [Concomitant]
     Active Substance: ALPRAZOLAM
     Indication: PROGRESSIVE MULTIPLE SCLEROSIS
     Dosage: UNK, UNKNOWN
  4. CLARITIN-D 12 HOUR [Suspect]
     Active Substance: LORATADINE\PSEUDOEPHEDRINE SULFATE
     Indication: SNEEZING
  5. BACLOFEN. [Concomitant]
     Active Substance: BACLOFEN
     Indication: PROGRESSIVE MULTIPLE SCLEROSIS
     Dosage: UNK, UNKNOWN
  6. GABAPENTIN. [Concomitant]
     Active Substance: GABAPENTIN
     Indication: PROGRESSIVE MULTIPLE SCLEROSIS
     Dosage: UNK, UNKNOWN
  7. CLARITIN-D 12 HOUR [Suspect]
     Active Substance: LORATADINE\PSEUDOEPHEDRINE SULFATE
     Indication: HYPERSENSITIVITY
     Dosage: 5 MG, Q8H
     Route: 048

REACTIONS (2)
  - Drug ineffective [Unknown]
  - Inappropriate schedule of drug administration [Unknown]
